FAERS Safety Report 8418930-2 (Version None)
Quarter: 2012Q2

REPORT INFORMATION
  Report Type: 
  Country: None (occurrence: None)
  Receive Date: 20120607
  Receipt Date: 20120529
  Transmission Date: 20120825
  Serious: Yes (Hospitalization, Other)
  Sender: FDA-Public Use
  Company Number: PHHY2012TR044201

PATIENT
  Sex: Male

DRUGS (1)
  1. TASIGNA [Suspect]
     Indication: CHRONIC MYELOID LEUKAEMIA
     Dosage: 800 MG,
     Route: 048
     Dates: start: 20090901, end: 20120401

REACTIONS (3)
  - PNEUMONIA [None]
  - ASTHMA [None]
  - PULMONARY MASS [None]
